FAERS Safety Report 4960715-3 (Version None)
Quarter: 2006Q2

REPORT INFORMATION
  Report Type: 
  Country: None (occurrence: None)
  Receive Date: 20060403
  Receipt Date: 20060313
  Transmission Date: 20061013
  Serious: Yes (Hospitalization)
  Sender: FDA-Public Use
  Company Number: US-MERCK-0603USA02300

PATIENT
  Age: 65 Year
  Sex: Male
  Weight: 80 kg

DRUGS (22)
  1. VIOXX [Suspect]
     Indication: ARTHRITIS
     Route: 048
     Dates: start: 20010915, end: 20040609
  2. THEO-DUR [Concomitant]
     Route: 065
  3. HUMIBID L.A. [Concomitant]
     Route: 065
  4. ADVAIR DISKUS 100/50 [Concomitant]
     Route: 065
  5. VASOTEC RPD [Concomitant]
     Route: 048
  6. LASIX [Concomitant]
     Route: 065
  7. LASIX [Concomitant]
     Route: 065
  8. PLAVIX [Concomitant]
     Route: 065
  9. ASPIRIN [Concomitant]
     Route: 065
  10. LIPITOR [Concomitant]
     Route: 065
  11. COMBIVENT [Concomitant]
     Route: 055
  12. POTASSIUM (UNSPECIFIED) [Concomitant]
     Route: 065
  13. HYDROCODONE BITARTRATE + ACETAMINOPHEN [Concomitant]
     Route: 065
  14. NEXIUM [Concomitant]
     Route: 065
  15. COUMADIN [Concomitant]
     Route: 065
  16. ALPRAZOLAM [Concomitant]
     Route: 065
  17. LISINOPRIL [Concomitant]
     Route: 065
  18. LISINOPRIL [Concomitant]
     Route: 065
  19. KENALOG [Concomitant]
     Route: 065
  20. HEPARIN [Concomitant]
     Route: 065
  21. NITROGLYCERIN [Concomitant]
     Route: 065
  22. NATURES CODE IMMUNE ENHANCER WITH ECHINACEA [Concomitant]
     Route: 065

REACTIONS (4)
  - ASTHMA [None]
  - CARDIAC FAILURE CONGESTIVE [None]
  - ISCHAEMIC STROKE [None]
  - JAW CYST [None]
